FAERS Safety Report 9988356 (Version 1)
Quarter: 2014Q1

REPORT INFORMATION
  Report Type: Report from Study
  Country: JP (occurrence: JP)
  Receive Date: 20140310
  Receipt Date: 20140310
  Transmission Date: 20141002
  Serious: Yes (Death, Other)
  Sender: FDA-Public Use
  Company Number: JP-ROCHE-1358579

PATIENT
  Sex: 0

DRUGS (3)
  1. BEVACIZUMAB [Suspect]
     Indication: COLORECTAL CANCER METASTATIC
     Dosage: ON DAYS 1 AND 15
     Route: 042
  2. LEUCOVORIN [Suspect]
     Indication: COLORECTAL CANCER METASTATIC
     Dosage: 75MG/BODY/DAY ON DAYS 1-21 FOLLOWED BY 7 DAYS REST
     Route: 048
  3. TEGAFUR/URACIL [Suspect]
     Indication: COLORECTAL CANCER METASTATIC
     Dosage: TREATMENT REPEATED EVERY 28 DAYS
     Route: 065

REACTIONS (5)
  - Death [Fatal]
  - Hypertension [Unknown]
  - Fatigue [Unknown]
  - Nausea [Unknown]
  - Diarrhoea [Unknown]
